FAERS Safety Report 5495924-0 (Version None)
Quarter: 2007Q4

REPORT INFORMATION
  Report Type: 
  Country: None (occurrence: None)
  Receive Date: 20071025
  Receipt Date: 20061114
  Transmission Date: 20080405
  Serious: No
  Sender: FDA-Public Use
  Company Number: A0627476A

PATIENT
  Age: 83 Year
  Sex: Female

DRUGS (5)
  1. ADVAIR DISKUS 100/50 [Suspect]
     Indication: ASTHMA
     Dosage: 1PUFF PER DAY
     Route: 055
  2. LORAZEPAM [Concomitant]
  3. TUMS [Concomitant]
  4. GAS-X [Concomitant]
  5. ALBUTEROL [Concomitant]

REACTIONS (3)
  - FLATULENCE [None]
  - NERVOUSNESS [None]
  - STOMACH DISCOMFORT [None]
